FAERS Safety Report 6936201-8 (Version None)
Quarter: 2010Q3

REPORT INFORMATION
  Report Type: 
  Country: None (occurrence: None)
  Receive Date: 20100823
  Receipt Date: 20100811
  Transmission Date: 20110219
  Serious: Yes (Other)
  Sender: FDA-Public Use
  Company Number: SE-PFIZER INC-2010100824

PATIENT
  Age: 68 Year
  Sex: Female
  Weight: 94.785 kg

DRUGS (5)
  1. DETRUSITOL [Suspect]
     Indication: HYPERTONIC BLADDER
     Dosage: 4 MG, UNK
     Dates: start: 20100205
  2. SOBRIL [Concomitant]
     Dosage: UNK
  3. ACETAMINOPHEN [Concomitant]
     Dosage: UNK
  4. OMEPRAZOLE [Concomitant]
     Dosage: UNK
  5. LEVOTHYROXINE SODIUM [Concomitant]
     Dosage: UNK

REACTIONS (1)
  - MUSCLE SPASMS [None]
